FAERS Safety Report 6902084-5 (Version None)
Quarter: 2010Q3

REPORT INFORMATION
  Report Type: 
  Country: None (occurrence: None)
  Receive Date: 20100803
  Receipt Date: 20080417
  Transmission Date: 20110219
  Serious: No
  Sender: FDA-Public Use
  Company Number: US-PFIZER INC-2008031603

PATIENT
  Sex: Female

DRUGS (4)
  1. LYRICA [Suspect]
     Indication: FIBROMYALGIA
     Dates: start: 20080101
  2. RELAFEN [Concomitant]
  3. ROBAXIN [Concomitant]
  4. DARVOCET [Concomitant]
     Indication: BREAKTHROUGH PAIN

REACTIONS (7)
  - BACK PAIN [None]
  - DRUG EFFECT DECREASED [None]
  - DRY MOUTH [None]
  - HEADACHE [None]
  - OEDEMA [None]
  - SOMNOLENCE [None]
  - WEIGHT INCREASED [None]
